FAERS Safety Report 23498786 (Version 1)
Quarter: 2024Q1

REPORT INFORMATION
  Report Type: Spontaneous
  Country: NL (occurrence: NL)
  Receive Date: 20240208
  Receipt Date: 20240208
  Transmission Date: 20240410
  Serious: Yes (Life-Threatening)
  Sender: FDA-Public Use
  Company Number: None

PATIENT
  Age: 82 Year
  Sex: Male
  Weight: 86 kg

DRUGS (8)
  1. CLOPIDOGREL [Suspect]
     Active Substance: CLOPIDOGREL BISULFATE
     Indication: Aortic aneurysm repair
     Dosage: 1DD1, CLOPIDOGREL TABLET   75MG / BRAND NAME NOT SPECIFIED
     Route: 048
     Dates: start: 20200321
  2. FERRICARBOXYMALTOSE [Concomitant]
     Indication: Product used for unknown indication
     Dosage: INJECTION FLUID, 50 MG/ML (MILLIGRAM PER MILLILITER)??FERRICARBOXYMALTOSE INJVLST 50MGFE/ML / BRA...
     Route: 065
  3. PRAVASTATIN [Concomitant]
     Active Substance: PRAVASTATIN
     Indication: Product used for unknown indication
     Dosage: 1 PIECE ONCE PER DAY, PRAVASTATINE TABLET 40MG / BRAND NAME NOT SPECIFIED
     Route: 048
  4. silicium Silidyn [Concomitant]
     Indication: Product used for unknown indication
     Dosage: 10 DROPS 1 X PER DAY (FOR THE NAILS)
     Route: 058
  5. TRANEXAMIC ACID [Concomitant]
     Active Substance: TRANEXAMIC ACID
     Indication: Product used for unknown indication
     Dosage: INJECTION FLUID, 100 MG/ML (MILLIGRAMS PER MILLILITER)?TRANEXAMIC ACID INJVLST 100MG/ML / BRAND N...
     Route: 065
  6. EZETIMIBE [Concomitant]
     Active Substance: EZETIMIBE
     Indication: Product used for unknown indication
     Dosage: 1 PIECE ONCE PER DAY?EZETIMIB TABLET 10MG / BRAND NAME NOT SPECIFIED
     Route: 048
  7. POLYETHYLENE GLYCOLS [Concomitant]
     Active Substance: POLYETHYLENE GLYCOLS
     Indication: Product used for unknown indication
     Dosage: 1 PIECE ONCE PER DAY?MACROGOL/SALTS PDR V DRINK (MOVIC/MOLAX/LAXT/GEN) / BRAND NAME NOT SPECIFIED
     Route: 048
  8. OMEPRAZOLE [Concomitant]
     Active Substance: OMEPRAZOLE
     Indication: Product used for unknown indication
     Dosage: 1 PIECE ONCE PER DAY?OMEPRAZOL CAPSULE MSR 20MG / BRAND NAME NOT SPECIFIED
     Route: 048

REACTIONS (1)
  - Small intestinal haemorrhage [Recovered/Resolved]
